FAERS Safety Report 9283178 (Version 1)
Quarter: 2013Q2

REPORT INFORMATION
  Report Type: Spontaneous
  Country: US (occurrence: US)
  Receive Date: 20130510
  Receipt Date: 20130510
  Transmission Date: 20140414
  Serious: No
  Sender: FDA-Public Use
  Company Number: US-GLAXOSMITHKLINE-A0984611A

PATIENT
  Age: 82 Year
  Sex: Female

DRUGS (7)
  1. TYKERB [Suspect]
     Indication: BREAST CANCER
     Dosage: 5TAB PER DAY
     Route: 048
     Dates: start: 201203
  2. XELODA [Concomitant]
  3. ANTI-NAUSEA DRUGS [Concomitant]
  4. BLOOD PRESSURE MEDICATION [Concomitant]
  5. VITAMINS [Concomitant]
  6. ASPIRIN [Concomitant]
  7. ANTI-DIARRHEAL [Concomitant]

REACTIONS (4)
  - Local swelling [Unknown]
  - Skin fissures [Unknown]
  - Diarrhoea [Unknown]
  - Gait disturbance [Unknown]
